FAERS Safety Report 11740705 (Version 2)
Quarter: 2015Q4

REPORT INFORMATION
  Report Type: Spontaneous
  Country: US (occurrence: US)
  Receive Date: 20151110
  Receipt Date: 20151120
  Transmission Date: 20160304
  Serious: No
  Sender: FDA-Public Use
  Company Number: US-ELI_LILLY_AND_COMPANY-US201208004765

PATIENT
  Age: 53 Year
  Sex: Female

DRUGS (4)
  1. FORTEO [Suspect]
     Active Substance: TERIPARATIDE
     Indication: BONE DENSITY DECREASED
     Dosage: 20 UG, QD
     Route: 065
     Dates: start: 20120801
  2. FORTEO [Suspect]
     Active Substance: TERIPARATIDE
     Dosage: 20 UG, QD
     Route: 065
  3. PERCOCET [Concomitant]
     Active Substance: ACETAMINOPHEN\OXYCODONE HYDROCHLORIDE
     Dosage: 15 MG, EVERY 6 HRS
  4. VALIUM [Concomitant]
     Active Substance: DIAZEPAM
     Dosage: 10 MG, EVERY 6 HRS
     Route: 065

REACTIONS (10)
  - Injection site erythema [Recovered/Resolved]
  - Injection site erythema [Unknown]
  - Pruritus [Recovered/Resolved]
  - Medication error [Unknown]
  - Spinal fracture [Not Recovered/Not Resolved]
  - Mental impairment [Unknown]
  - Kyphosis [Not Recovered/Not Resolved]
  - Vomiting [Recovered/Resolved]
  - Injection site haemorrhage [Unknown]
  - Injection site pain [Unknown]

NARRATIVE: CASE EVENT DATE: 201208
